FAERS Safety Report 5142420-6 (Version None)
Quarter: 2006Q4

REPORT INFORMATION
  Report Type: 
  Country: None (occurrence: None)
  Receive Date: 20061102
  Receipt Date: 20051118
  Transmission Date: 20070319
  Serious: Yes (Disabling)
  Sender: FDA-Public Use
  Company Number: NO-ELI_LILLY_AND_COMPANY-NO200610005333

PATIENT
  Age: 72 Year
  Sex: Male

DRUGS (6)
  1. TERIPARATIDE [Suspect]
     Dosage: 20 UG/24HR, DAILY (1/D)
     Route: 058
     Dates: start: 20050701, end: 20050912
  2. LISINOPRIL [Concomitant]
     Dosage: 10 MG, DAILY (1/D)
     Route: 048
  3. OXYCONTIN [Concomitant]
     Indication: PAIN
     Dosage: 40 MG, DAILY (1/D)
     Route: 048
  4. CARDIZEM SR [Concomitant]
     Indication: HYPERTENSION
     Dosage: 120 MG, 2/D
     Route: 048
  5. KESTINE                                 /FIN/ [Concomitant]
     Indication: HYPERSENSITIVITY
     Dosage: 10 MG, DAILY (1/D)
     Route: 048
  6. FOSAMAX                                 /ITA/ [Concomitant]

REACTIONS (4)
  - ARTHRALGIA [None]
  - BLOOD CALCIUM INCREASED [None]
  - MYALGIA [None]
  - PAIN IN EXTREMITY [None]
